FAERS Safety Report 19477733 (Version 1)
Quarter: 2021Q2

REPORT INFORMATION
  Report Type: Spontaneous
  Country: US (occurrence: US)
  Receive Date: 20210630
  Receipt Date: 20210630
  Transmission Date: 20210717
  Serious: No
  Sender: FDA-Public Use
  Company Number: US-KRAMERLABS-2020-US-016890

PATIENT
  Age: 50 Year
  Sex: 0
  Weight: 68.04 kg

DRUGS (1)
  1. NIZORAL A?D [Suspect]
     Active Substance: KETOCONAZOLE
     Indication: ECZEMA
     Dosage: USED IN THE SHOWER A COUPLE OF TIMES PER WEEK
     Route: 061
     Dates: start: 2013, end: 20200813

REACTIONS (3)
  - Rash papular [Recovered/Resolved]
  - Product use in unapproved indication [Recovered/Resolved]
  - Intentional product misuse [Recovered/Resolved]

NARRATIVE: CASE EVENT DATE: 2013
